FAERS Safety Report 7617305-3 (Version None)
Quarter: 2011Q3

REPORT INFORMATION
  Report Type: 
  Country: None (occurrence: None)
  Receive Date: 20110718
  Receipt Date: 20110706
  Transmission Date: 20111222
  Serious: Yes (Hospitalization)
  Sender: FDA-Public Use
  Company Number: PHHY2011DE60357

PATIENT
  Age: 31 Year
  Sex: Female

DRUGS (1)
  1. CARBAMAZEPINE [Suspect]
     Indication: EPILEPSY
     Dosage: 800 MG, PER DAY
     Route: 048

REACTIONS (2)
  - MATERNAL EXPOSURE DURING PREGNANCY [None]
  - PREMATURE LABOUR [None]
